FAERS Safety Report 18690405 (Version 3)
Quarter: 2021Q1

REPORT INFORMATION
  Report Type: Other
  Country: US (occurrence: US)
  Receive Date: 20210101
  Receipt Date: 20210204
  Transmission Date: 20210419
  Serious: No
  Sender: FDA-Public Use
  Company Number: US-ROCHE-2741850

PATIENT
  Age: 28 Year
  Sex: Female
  Weight: 93.07 kg

DRUGS (5)
  1. OCREVUS [Suspect]
     Active Substance: OCRELIZUMAB
     Indication: RELAPSING-REMITTING MULTIPLE SCLEROSIS
     Dosage: MOST RECENT INFUSIONS RECEIVED ON 01/MAY/2019, 19/SEP/2019, 06/DEC/2019, 16/APR/2020, 12/JUN/2020.?6
     Route: 042
     Dates: start: 201706
  2. HYDROCHLOROTHIAZIDE. [Concomitant]
     Active Substance: HYDROCHLOROTHIAZIDE
     Indication: HYPERTENSION
     Dosage: AT NIGHT
     Route: 048
  3. PREDNISONE. [Concomitant]
     Active Substance: PREDNISONE
     Indication: HEADACHE
     Route: 048
  4. OCREVUS [Suspect]
     Active Substance: OCRELIZUMAB
     Indication: MULTIPLE SCLEROSIS
  5. TRIAMCINOLONE [Concomitant]
     Active Substance: TRIAMCINOLONE

REACTIONS (2)
  - COVID-19 [Unknown]
  - Fatigue [Unknown]

NARRATIVE: CASE EVENT DATE: 201706
